FAERS Safety Report 8415387-2 (Version None)
Quarter: 2012Q2

REPORT INFORMATION
  Report Type: 
  Country: None (occurrence: None)
  Receive Date: 20120606
  Receipt Date: 20120601
  Transmission Date: 20120825
  Serious: Yes (Hospitalization)
  Sender: FDA-Public Use
  Company Number: PHEH2012US010483

PATIENT
  Sex: Male

DRUGS (4)
  1. VICODIN [Concomitant]
  2. HYDROCHLOROTHIAZIDE [Concomitant]
  3. DIOVAN [Suspect]
     Dosage: 0.5 DF (320 MG), UNK
  4. DIOVAN [Suspect]
     Dosage: 320 MG, BID

REACTIONS (5)
  - DYSPNOEA [None]
  - AMNESIA [None]
  - CHEST DISCOMFORT [None]
  - HYPERTENSION [None]
  - WRONG TECHNIQUE IN DRUG USAGE PROCESS [None]
